FAERS Safety Report 4893294-X (Version None)
Quarter: 2006Q1

REPORT INFORMATION
  Report Type: 
  Country: None (occurrence: None)
  Receive Date: 20060125
  Receipt Date: 20060125
  Transmission Date: 20060701
  Serious: Yes (Other)
  Sender: FDA-Public Use
  Company Number: None

PATIENT
  Sex: Female
  Weight: 79.3795 kg

DRUGS (1)
  1. FOLLISTIM [Suspect]
     Indication: INFERTILITY
     Dosage: 125 IV FOR 5D QD X 7 DAYS SQ; 150 IV FOR 2 D
     Route: 058
     Dates: start: 20050709, end: 20050715

REACTIONS (2)
  - DRUG EFFECT DECREASED [None]
  - DYSPNOEA [None]
